FAERS Safety Report 7577189-9 (Version None)
Quarter: 2011Q2

REPORT INFORMATION
  Report Type: 
  Country: None (occurrence: None)
  Receive Date: 20110628
  Receipt Date: 20110614
  Transmission Date: 20111010
  Serious: Yes (Other)
  Sender: FDA-Public Use
  Company Number: US-NOVOPROD-329926

PATIENT
  Age: 18 Year
  Sex: Female

DRUGS (5)
  1. INSULIN LISPRO [Concomitant]
  2. NOVOLIN N [Suspect]
     Indication: TYPE 1 DIABETES MELLITUS
     Route: 058
  3. NOVOLOG [Suspect]
     Indication: TYPE 1 DIABETES MELLITUS
     Route: 058
  4. ISOPHANE INSULIN [Suspect]
  5. INSULIN GLULISINE [Concomitant]

REACTIONS (4)
  - ANTI-INSULIN ANTIBODY INCREASED [None]
  - SUBCUTANEOUS NODULE [None]
  - HYPERAESTHESIA [None]
  - ERYTHEMA [None]
